FAERS Safety Report 8063949-7 (Version None)
Quarter: 2012Q1

REPORT INFORMATION
  Report Type: 
  Country: None (occurrence: None)
  Receive Date: 20120123
  Receipt Date: 20120116
  Transmission Date: 20120608
  Serious: Yes (Other)
  Sender: FDA-Public Use
  Company Number: PHHY2011AU111710

PATIENT
  Sex: Female

DRUGS (4)
  1. GILENYA [Suspect]
     Indication: MULTIPLE SCLEROSIS
     Dosage: UNK
     Route: 048
     Dates: start: 20110801
  2. LEXAPRO [Concomitant]
     Indication: DEPRESSION
     Route: 048
  3. VITAMIN D [Concomitant]
     Dosage: UNK UKN, UNK
  4. MULTI-VITAMINS [Concomitant]
     Dosage: UNK UKN, UNK

REACTIONS (9)
  - GASTROOESOPHAGEAL REFLUX DISEASE [None]
  - BASAL CELL CARCINOMA [None]
  - CONTUSION [None]
  - LIVER FUNCTION TEST ABNORMAL [None]
  - MENSTRUAL DISORDER [None]
  - MENORRHAGIA [None]
  - ERYTHEMA [None]
  - PIGMENTATION DISORDER [None]
  - SKIN LESION [None]
